FAERS Safety Report 7817760-X (Version None)
Quarter: 2011Q4

REPORT INFORMATION
  Report Type: 
  Country: None (occurrence: None)
  Receive Date: 20111017
  Receipt Date: 20111010
  Transmission Date: 20120403
  Serious: Yes (Hospitalization)
  Sender: FDA-Public Use
  Company Number: US-JNJFOC-20110705396

PATIENT
  Sex: Male
  Weight: 77.11 kg

DRUGS (4)
  1. DIOVAN [Concomitant]
     Indication: HYPERTENSION
     Route: 048
  2. ACTOS [Concomitant]
     Indication: DIABETES MELLITUS
     Route: 048
     Dates: end: 20100101
  3. SPORANOX [Suspect]
     Indication: HISTOPLASMOSIS
     Route: 065
     Dates: start: 20100701, end: 20101101
  4. LANTUS [Concomitant]
     Indication: DIABETES MELLITUS
     Dosage: 4 U UNITS
     Route: 058
     Dates: start: 20100101

REACTIONS (2)
  - DIABETES MELLITUS [None]
  - CARDIAC FAILURE CONGESTIVE [None]
